FAERS Safety Report 21826570 (Version 1)
Quarter: 2023Q1

REPORT INFORMATION
  Report Type: Report from Study
  Country: CA (occurrence: CA)
  Receive Date: 20230106
  Receipt Date: 20230106
  Transmission Date: 20230418
  Serious: Yes (Hospitalization)
  Sender: FDA-Public Use
  Company Number: CA-ABBVIE-4258643

PATIENT
  Age: 65 Year
  Sex: Female

DRUGS (1)
  1. RINVOQ [Suspect]
     Active Substance: UPADACITINIB
     Indication: Rheumatoid arthritis
     Dosage: 15 MILLIGRAM
     Route: 048
     Dates: start: 20211101

REACTIONS (7)
  - Fall [Unknown]
  - Head injury [Unknown]
  - Eye contusion [Unknown]
  - Malaise [Unknown]
  - Vomiting [Unknown]
  - Facial bones fracture [Unknown]
  - Contusion [Unknown]

NARRATIVE: CASE EVENT DATE: 20221231
